FAERS Safety Report 25549407 (Version 1)
Quarter: 2025Q3

REPORT INFORMATION
  Report Type: Spontaneous
  Country: US (occurrence: US)
  Receive Date: 20250714
  Receipt Date: 20250714
  Transmission Date: 20251021
  Serious: No
  Sender: ALEXION PHARMACEUTICALS
  Company Number: US-AstraZeneca-CH-00907675A

PATIENT
  Sex: Female

DRUGS (2)
  1. KOSELUGO [Suspect]
     Active Substance: SELUMETINIB
     Indication: Neurofibromatosis
     Route: 065
  2. KOSELUGO [Suspect]
     Active Substance: SELUMETINIB
     Indication: Ganglioneuroma

REACTIONS (4)
  - Off label use [Unknown]
  - Vomiting [Unknown]
  - Feeding disorder [Unknown]
  - Malnutrition [Unknown]
